FAERS Safety Report 13569065 (Version 1)
Quarter: 2017Q2

REPORT INFORMATION
  Report Type: Spontaneous
  Country: JP (occurrence: JP)
  Receive Date: 20170522
  Receipt Date: 20170522
  Transmission Date: 20170830
  Serious: Yes (Hospitalization, Other)
  Sender: FDA-Public Use
  Company Number: JP-SA-2017SA091758

PATIENT

DRUGS (2)
  1. RITUXIMAB [Concomitant]
     Active Substance: RITUXIMAB
     Indication: EXTRANODAL MARGINAL ZONE B-CELL LYMPHOMA (MALT TYPE)
     Route: 042
  2. RASURITEK [Suspect]
     Active Substance: RASBURICASE
     Route: 042

REACTIONS (3)
  - Uraemic encephalopathy [Unknown]
  - Infusion related reaction [Unknown]
  - Altered state of consciousness [Unknown]
